FAERS Safety Report 15006617 (Version 1)
Quarter: 2018Q2

REPORT INFORMATION
  Report Type: Report from Study
  Country: US (occurrence: US)
  Receive Date: 20180613
  Receipt Date: 20180613
  Transmission Date: 20180711
  Serious: No
  Sender: FDA-Public Use
  Company Number: US-US WORLDMEDS, LLC-USW201710-001419

PATIENT
  Age: 74 Year
  Sex: Female
  Weight: 47.62 kg

DRUGS (19)
  1. MELATONIN [Concomitant]
     Active Substance: MELATONIN
  2. MUCINEX [Concomitant]
     Active Substance: GUAIFENESIN
  3. AMANTADINE. [Concomitant]
     Active Substance: AMANTADINE HYDROCHLORIDE
  4. AZILCET [Concomitant]
  5. OMEPRAZOLE. [Concomitant]
     Active Substance: OMEPRAZOLE
  6. VITAMIN D3 [Concomitant]
     Active Substance: CHOLECALCIFEROL
  7. RYTARY [Concomitant]
     Active Substance: CARBIDOPA\LEVODOPA
  8. TESTOSTERONE. [Concomitant]
     Active Substance: TESTOSTERONE
  9. ASA [Concomitant]
     Active Substance: ASPIRIN
  10. PROGESTERONE. [Concomitant]
     Active Substance: PROGESTERONE
  11. APOKYN [Suspect]
     Active Substance: APOMORPHINE HYDROCHLORIDE
     Indication: PARKINSON^S DISEASE
     Route: 058
     Dates: start: 20170913
  12. TIGAN [Concomitant]
     Active Substance: TRIMETHOBENZAMIDE HYDROCHLORIDE
  13. DONEPEZIL. [Concomitant]
     Active Substance: DONEPEZIL
  14. BENADRYL [Concomitant]
     Active Substance: DIPHENHYDRAMINE HYDROCHLORIDE
  15. AMITIZA [Concomitant]
     Active Substance: LUBIPROSTONE
  16. CEVIMELINE. [Concomitant]
     Active Substance: CEVIMELINE
  17. CYMBALTA [Concomitant]
     Active Substance: DULOXETINE HYDROCHLORIDE
  18. NUEDEXTA [Concomitant]
     Active Substance: DEXTROMETHORPHAN HYDROBROMIDE\QUINIDINE SULFATE
  19. LITHIUM. [Concomitant]
     Active Substance: LITHIUM

REACTIONS (3)
  - Drug ineffective [Unknown]
  - Headache [Unknown]
  - Somnolence [Unknown]

NARRATIVE: CASE EVENT DATE: 20170929
